FAERS Safety Report 10882605 (Version 2)
Quarter: 2015Q1

REPORT INFORMATION
  Report Type: Spontaneous
  Country: US (occurrence: US)
  Receive Date: 20150303
  Receipt Date: 20150310
  Transmission Date: 20150721
  Serious: No
  Sender: FDA-Public Use
  Company Number: US-ASTRAZENECA-2015SE17756

PATIENT
  Sex: Male

DRUGS (1)
  1. BUDESONIDE NASAL [Suspect]
     Active Substance: BUDESONIDE
     Route: 045

REACTIONS (4)
  - Drug dose omission [Unknown]
  - Dyspnoea [Unknown]
  - Intentional product misuse [Unknown]
  - Adverse event [Unknown]

NARRATIVE: CASE EVENT DATE: 201502
